FAERS Safety Report 16951515 (Version 1)
Quarter: 2019Q4

REPORT INFORMATION
  Report Type: Spontaneous
  Country: US (occurrence: US)
  Receive Date: 20191023
  Receipt Date: 20191023
  Transmission Date: 20200122
  Serious: No
  Sender: FDA-Public Use
  Company Number: US-APOTEX-2019AP013467

PATIENT

DRUGS (1)
  1. LEVETIRACETAM EXTENDED-RELEASE TABLETS [Suspect]
     Active Substance: LEVETIRACETAM
     Indication: PRODUCT USED FOR UNKNOWN INDICATION
     Dosage: 1500 MG, BID
     Route: 065
     Dates: start: 201901

REACTIONS (6)
  - Headache [Unknown]
  - Parosmia [Unknown]
  - Dizziness [Unknown]
  - Dysgeusia [Unknown]
  - Mood swings [Unknown]
  - Epileptic aura [Unknown]
